FAERS Safety Report 10262429 (Version 1)
Quarter: 2014Q2

REPORT INFORMATION
  Report Type: Spontaneous
  Country: FR (occurrence: FR)
  Receive Date: 20140626
  Receipt Date: 20140626
  Transmission Date: 20141212
  Serious: Yes (Other)
  Sender: FDA-Public Use
  Company Number: FR-ASTRAZENECA-2014SE45681

PATIENT
  Age: 25593 Day
  Sex: Male
  Weight: 91 kg

DRUGS (9)
  1. INEXIUM [Suspect]
     Route: 048
  2. METHOTREXATE [Suspect]
     Indication: CENTRAL NERVOUS SYSTEM LYMPHOMA
     Dosage: 3000 MG/M2 MEANING 6G
     Route: 042
     Dates: start: 20120202, end: 20140202
  3. PREDNISONE [Concomitant]
  4. RITUXIMAB [Concomitant]
  5. ETOPOSIDE [Concomitant]
  6. ZOPHREN [Concomitant]
  7. PARACETAMOL [Concomitant]
  8. CRESTOR [Concomitant]
     Route: 048
  9. POLARAMINE [Concomitant]

REACTIONS (1)
  - Renal failure acute [Recovered/Resolved]
